FAERS Safety Report 4664269-0 (Version None)
Quarter: 2005Q2

REPORT INFORMATION
  Report Type: 
  Country: None (occurrence: None)
  Receive Date: 20050511
  Receipt Date: 20050325
  Transmission Date: 20051028
  Serious: Yes (Other)
  Sender: FDA-Public Use
  Company Number: 602993

PATIENT
  Sex: Male

DRUGS (2)
  1. HEMOFIL [Suspect]
     Indication: HAEMOPHILIA
  2. PROPLEX T [Suspect]
     Indication: HAEMOPHILIA

REACTIONS (12)
  - ACQUIRED IMMUNODEFICIENCY SYNDROME [None]
  - GASTRITIS [None]
  - HEPATITIS C VIRUS [None]
  - HERPES VIRUS INFECTION [None]
  - HIV INFECTION [None]
  - MENINGITIS [None]
  - MOUTH ULCERATION [None]
  - OPPORTUNISTIC INFECTION [None]
  - ORAL SOFT TISSUE DISORDER [None]
  - PHARMACEUTICAL PRODUCT COMPLAINT [None]
  - PNEUMONIA [None]
  - POLYTRAUMATISM [None]
